FAERS Safety Report 10209569 (Version 2)
Quarter: 2014Q2

REPORT INFORMATION
  Report Type: Report from Study
  Country: CH (occurrence: CH)
  Receive Date: 20140602
  Receipt Date: 20140602
  Transmission Date: 20141212
  Serious: Yes (Other)
  Sender: FDA-Public Use
  Company Number: CH-009507513-1110USA00264

PATIENT
  Age: 85 Year
  Sex: Male
  Weight: 65 kg

DRUGS (5)
  1. SIMVASTATIN [Suspect]
     Indication: ACUTE CORONARY SYNDROME
     Dosage: 40 MG, QD
     Route: 048
     Dates: start: 20070327
  2. TELMISARTAN [Concomitant]
     Dosage: 80 MG, QD
     Route: 048
     Dates: start: 20080909
  3. HYDROCHLOROTHIAZIDE [Concomitant]
     Dosage: 12.5 MG, QD
     Route: 048
     Dates: start: 20090325
  4. ASPIRIN [Concomitant]
     Dosage: 100 MG, QD
     Route: 048
     Dates: start: 20050101
  5. METOPROLOL [Concomitant]
     Dosage: 100 MG, QD
     Route: 048
     Dates: start: 20070326

REACTIONS (1)
  - Pemphigoid [Not Recovered/Not Resolved]
